FAERS Safety Report 20472470 (Version 1)
Quarter: 2022Q1

REPORT INFORMATION
  Report Type: Spontaneous
  Country: FR (occurrence: FR)
  Receive Date: 20220215
  Receipt Date: 20220215
  Transmission Date: 20220423
  Serious: Yes (Other)
  Sender: FDA-Public Use
  Company Number: FR-AFSSAPS-NC20220272

PATIENT
  Age: 87 Year
  Sex: Female

DRUGS (2)
  1. IBUPROFEN [Suspect]
     Active Substance: IBUPROFEN
     Indication: Back pain
     Dosage: 4 DOSAGE FORM, DAILY
     Route: 048
     Dates: start: 202110, end: 202110
  2. ASPIRIN [Suspect]
     Active Substance: ASPIRIN
     Indication: Back pain
     Dosage: DOSAGE NOT SPECIFIED ()
     Route: 048
     Dates: start: 202110, end: 202110

REACTIONS (1)
  - Rectal haemorrhage [Recovering/Resolving]

NARRATIVE: CASE EVENT DATE: 20211026
